FAERS Safety Report 4714637-3 (Version None)
Quarter: 2005Q3

REPORT INFORMATION
  Report Type: 
  Country: None (occurrence: None)
  Receive Date: 20050712
  Receipt Date: 20050630
  Transmission Date: 20060218
  Serious: Yes (Hospitalization, Disabling)
  Sender: FDA-Public Use
  Company Number: 2005074070

PATIENT
  Age: 66 Year
  Sex: Male
  Weight: 68 kg

DRUGS (4)
  1. NEURONTIN [Suspect]
     Indication: PAIN
     Dosage: 900 MG (300 MG,3 IN 1 D),ORAL
     Route: 048
     Dates: start: 20050101, end: 20050501
  2. CARBIMAZOLE (CARBIMAZOLE) [Suspect]
     Indication: ILL-DEFINED DISORDER
     Dosage: ORAL
     Route: 048
     Dates: start: 20050101, end: 20050601
  3. RESTEX (BENSERAZIDE HYDROCHLORIDE, LEVODOPA) [Concomitant]
  4. TRAMADOL HCL [Concomitant]

REACTIONS (12)
  - ABDOMINAL PAIN UPPER [None]
  - ANOREXIA [None]
  - ASTHENIA [None]
  - CONDITION AGGRAVATED [None]
  - CONSTIPATION [None]
  - DISEASE RECURRENCE [None]
  - FATIGUE [None]
  - HYPOAESTHESIA [None]
  - NAUSEA [None]
  - PAIN [None]
  - SKIN BURNING SENSATION [None]
  - WEIGHT DECREASED [None]
